FAERS Safety Report 24566271 (Version 2)
Quarter: 2024Q4

REPORT INFORMATION
  Report Type: Report from Study
  Country: JP (occurrence: JP)
  Receive Date: 20241030
  Receipt Date: 20241118
  Transmission Date: 20250115
  Serious: Yes (Hospitalization)
  Sender: ABBVIE
  Company Number: JP-ABBVIE-5955835

PATIENT
  Age: 67 Year
  Sex: Male

DRUGS (1)
  1. FOSCARBIDOPA\FOSLEVODOPA [Suspect]
     Active Substance: FOSCARBIDOPA\FOSLEVODOPA
     Indication: Parkinson^s disease
     Dosage: 6.15 ML/DAY
     Route: 058
     Dates: start: 20240514

REACTIONS (1)
  - General physical condition abnormal [Recovering/Resolving]

NARRATIVE: CASE EVENT DATE: 20240802
